FAERS Safety Report 11097496 (Version 1)
Quarter: 2015Q2

REPORT INFORMATION
  Report Type: Spontaneous
  Country: GB (occurrence: GB)
  Receive Date: 20150507
  Receipt Date: 20150507
  Transmission Date: 20150821
  Serious: Yes (Life-Threatening, Other)
  Sender: FDA-Public Use
  Company Number: GB-GLAXOSMITHKLINE INC.-GB2015060311

PATIENT
  Age: 49 Year
  Sex: Female
  Weight: 63 kg

DRUGS (3)
  1. TEMAZEPAM. [Concomitant]
     Active Substance: TEMAZEPAM
     Dosage: DOSE INCREASED TO 10 MG.
     Dates: start: 201412
  2. AVAMYS [Suspect]
     Active Substance: FLUTICASONE FUROATE
     Indication: NASAL POLYPS
     Route: 045
     Dates: start: 20140218, end: 20150217
  3. TEMAZEPAM. [Concomitant]
     Active Substance: TEMAZEPAM
     Indication: SLEEP DISORDER
     Dosage: AROUND 1.25MG ON AVERAGE TWICE A WEEK (LESS THAN PRESCRIBED), LONG TERM.
     Dates: start: 201107, end: 201412

REACTIONS (25)
  - Ocular discomfort [Recovered/Resolved with Sequelae]
  - Bronchitis [Unknown]
  - Nasal septum perforation [Recovered/Resolved with Sequelae]
  - Eye swelling [Recovered/Resolved with Sequelae]
  - Infection susceptibility increased [Unknown]
  - Systemic candida [Unknown]
  - Dyspnoea [Recovered/Resolved with Sequelae]
  - Anosmia [Recovered/Resolved with Sequelae]
  - Contusion [Recovered/Resolved with Sequelae]
  - Nasal discomfort [Recovered/Resolved with Sequelae]
  - Nasal obstruction [Recovered/Resolved with Sequelae]
  - Sleep apnoea syndrome [Recovered/Resolved with Sequelae]
  - Nasopharyngitis [Recovered/Resolved with Sequelae]
  - Nasal oedema [Recovered/Resolved with Sequelae]
  - Epistaxis [Recovered/Resolved with Sequelae]
  - Nasal ulcer [Recovered/Resolved with Sequelae]
  - Condition aggravated [Recovered/Resolved]
  - Incorrect drug administration duration [Unknown]
  - Visual impairment [Unknown]
  - Sleep apnoea syndrome [Unknown]
  - Off label use [Unknown]
  - Fungal infection [Not Recovered/Not Resolved]
  - Ageusia [Recovered/Resolved with Sequelae]
  - Headache [Unknown]
  - Dermatitis [Unknown]

NARRATIVE: CASE EVENT DATE: 201411
